FAERS Safety Report 4457270-3 (Version None)
Quarter: 2004Q3

REPORT INFORMATION
  Report Type: 
  Country: None (occurrence: None)
  Receive Date: 20040922
  Receipt Date: 20040915
  Transmission Date: 20050211
  Serious: Yes (Other)
  Sender: FDA-Public Use
  Company Number: 2004221813US

PATIENT
  Sex: Male
  Weight: 65.8 kg

DRUGS (4)
  1. CELEBREX [Suspect]
     Indication: OSTEOARTHRITIS
     Dosage: 1 DF, QD
     Dates: start: 20040706, end: 20040720
  2. LASIX [Concomitant]
  3. DIGOXIN [Concomitant]
  4. QUINIDINE (QUINIDINE) [Concomitant]

REACTIONS (2)
  - CARDIAC FAILURE CONGESTIVE [None]
  - EXTRASYSTOLES [None]
